FAERS Safety Report 19906967 (Version 7)
Quarter: 2022Q2

REPORT INFORMATION
  Report Type: Report from Study
  Country: BR (occurrence: BR)
  Receive Date: 20210930
  Receipt Date: 20220516
  Transmission Date: 20220721
  Serious: Yes (Hospitalization, Other)
  Sender: FDA-Public Use
  Company Number: BR-BAYER-2021A216411

PATIENT
  Sex: Male
  Weight: 71.2 kg

DRUGS (2)
  1. COPANLISIB [Suspect]
     Active Substance: COPANLISIB
     Indication: B-cell lymphoma recurrent
     Dosage: 60 MG, QD
     Route: 042
     Dates: start: 20161207
  2. RITUXIMAB [Suspect]
     Active Substance: RITUXIMAB
     Indication: B-cell lymphoma recurrent
     Dosage: 375 MG/M2, QD
     Route: 042
     Dates: start: 20161207, end: 20170726

REACTIONS (1)
  - Panniculitis [Recovered/Resolved]

NARRATIVE: CASE EVENT DATE: 20210921
